FAERS Safety Report 6925504-9 (Version None)
Quarter: 2010Q3

REPORT INFORMATION
  Report Type: 
  Country: None (occurrence: None)
  Receive Date: 20100813
  Receipt Date: 20100813
  Transmission Date: 20110219
  Serious: Yes (Other)
  Sender: FDA-Public Use
  Company Number: None

PATIENT

DRUGS (1)
  1. ZICAM NASAL SPRAY EXTREME CONGESTION RELIEF [Suspect]

REACTIONS (6)
  - AGEUSIA [None]
  - ANOSMIA [None]
  - BURNING SENSATION MUCOSAL [None]
  - CHILLS [None]
  - INSOMNIA [None]
  - PAIN [None]
